FAERS Safety Report 17404305 (Version 1)
Quarter: 2020Q1

REPORT INFORMATION
  Report Type: Spontaneous
  Country: US (occurrence: US)
  Receive Date: 20200211
  Receipt Date: 20200211
  Transmission Date: 20200409
  Serious: No
  Sender: FDA-Public Use
  Company Number: US-CUMBERLAND-2020-US-000008

PATIENT
  Age: 53 Year
  Sex: Male

DRUGS (2)
  1. KRISTALOSE [Suspect]
     Active Substance: LACTULOSE
     Dates: start: 20200101
  2. LENVIMA [Concomitant]
     Active Substance: LENVATINIB
     Dates: start: 20200116

REACTIONS (1)
  - Diarrhoea [Not Recovered/Not Resolved]

NARRATIVE: CASE EVENT DATE: 20200101
